FAERS Safety Report 8300762 (Version 2)
Quarter: 2012Q4

REPORT INFORMATION
  Report Type: 
  Country: US (occurrence: US)
  Receive Date: 20111219
  Receipt Date: 20121205
  Transmission Date: 20130627
  Serious: Yes (Other)
  Sender: FDA-Public Use
  Company Number: US-ASTRAZENECA-2011SE34837

PATIENT
  Age: 66 Year
  Sex: Female

DRUGS (3)
  1. CRESTOR [Suspect]
     Route: 048
  2. ARANEST [Concomitant]
  3. OXYGEN [Concomitant]

REACTIONS (12)
  - Embolism [Unknown]
  - Diabetes mellitus [Unknown]
  - Scleroderma [Unknown]
  - Arthritis [Unknown]
  - Cardiac disorder [Unknown]
  - Osteoarthritis [Unknown]
  - Osteoporosis [Unknown]
  - Renal disorder [Unknown]
  - Cardiac failure congestive [Unknown]
  - Fibromyalgia [Unknown]
  - Anaemia [Unknown]
  - Lung disorder [Unknown]
